FAERS Safety Report 25715713 (Version 1)
Quarter: 2025Q3

REPORT INFORMATION
  Report Type: Spontaneous
  Country: GB (occurrence: GB)
  Receive Date: 20250822
  Receipt Date: 20250822
  Transmission Date: 20251021
  Serious: Yes (Other)
  Sender: INSUD PHARMA
  Company Number: None

PATIENT
  Sex: Male

DRUGS (1)
  1. OMEPRAZOLE [Suspect]
     Active Substance: OMEPRAZOLE
     Indication: Adverse drug reaction
     Route: 065
     Dates: start: 20250814, end: 20250818

REACTIONS (1)
  - Logorrhoea [Recovering/Resolving]

NARRATIVE: CASE EVENT DATE: 20250815
